FAERS Safety Report 24594147 (Version 1)
Quarter: 2024Q4

REPORT INFORMATION
  Report Type: Report from Study
  Country: CA (occurrence: CA)
  Receive Date: 20241108
  Receipt Date: 20241108
  Transmission Date: 20250115
  Serious: Yes (Other)
  Sender: RANBAXY
  Company Number: CA-SUN PHARMACEUTICAL INDUSTRIES LTD-2024R1-477975

PATIENT
  Age: 70 Year
  Sex: Female

DRUGS (11)
  1. CETIRIZINE [Suspect]
     Active Substance: CETIRIZINE HYDROCHLORIDE
     Indication: Chronic spontaneous urticaria
     Dosage: 20 MILLIGRAM, BID
     Route: 065
  2. FAMOTIDINE [Suspect]
     Active Substance: FAMOTIDINE
     Indication: Chronic spontaneous urticaria
     Dosage: 20 MILLIGRAM, BID
     Route: 065
  3. MONTELUKAST [Suspect]
     Active Substance: MONTELUKAST
     Indication: Chronic spontaneous urticaria
     Dosage: 10 MILLIGRAM, DAILY
     Route: 065
  4. BILASTINE [Suspect]
     Active Substance: BILASTINE
     Indication: Chronic spontaneous urticaria
     Dosage: 40 MILLIGRAM, BID
     Route: 065
  5. HYDROXYZINE [Suspect]
     Active Substance: HYDROXYZINE HYDROCHLORIDE
     Indication: Chronic spontaneous urticaria
     Dosage: 25 MILLIGRAM/ EVERY EVENING
     Route: 065
  6. OMALIZUMAB [Suspect]
     Active Substance: OMALIZUMAB
     Indication: Chronic spontaneous urticaria
     Dosage: 600 MILLIGRAM/Q4W
     Route: 065
  7. ANAKINRA [Suspect]
     Active Substance: ANAKINRA
     Indication: Chronic spontaneous urticaria
     Dosage: 100 MILLIGRAM, DAILY
     Route: 058
  8. BRODALUMAB [Suspect]
     Active Substance: BRODALUMAB
     Indication: Chronic spontaneous urticaria
     Dosage: 210 MILLIGRAM/Q2W
     Route: 058
  9. CYCLOSPORINE [Suspect]
     Active Substance: CYCLOSPORINE
     Indication: Chronic spontaneous urticaria
     Dosage: 1-3 MG KG-1
     Route: 065
  10. COLCHICINE [Suspect]
     Active Substance: COLCHICINE
     Indication: Chronic spontaneous urticaria
     Dosage: 0.6 MILLIGRAM, DAILY
     Route: 065
  11. DAPSONE [Suspect]
     Active Substance: DAPSONE
     Indication: Chronic spontaneous urticaria
     Dosage: 100 MILLIGRAM, DAILY
     Route: 065

REACTIONS (1)
  - Treatment failure [Unknown]
